FAERS Safety Report 23346532 (Version 5)
Quarter: 2024Q1

REPORT INFORMATION
  Report Type: Report from Study
  Country: US (occurrence: US)
  Receive Date: 20231228
  Receipt Date: 20240329
  Transmission Date: 20240410
  Serious: Yes (Hospitalization, Other)
  Sender: FDA-Public Use
  Company Number: US-SUN PHARMACEUTICAL INDUSTRIES LTD-2023R1-425239

PATIENT
  Sex: Male

DRUGS (2)
  1. SONIDEGIB [Suspect]
     Active Substance: SONIDEGIB
     Indication: Product used for unknown indication
     Dosage: 200 MILLIGRAM, DAILY
     Route: 048
  2. SONIDEGIB [Suspect]
     Active Substance: SONIDEGIB
     Dosage: UNK (TAKE 1 CAPSULE ONCE A DAY)
     Route: 048

REACTIONS (7)
  - Dehydration [Unknown]
  - Haematuria [Unknown]
  - Pruritus [Unknown]
  - Psoriasis [Unknown]
  - Asthenia [Unknown]
  - Vomiting [Unknown]
  - Therapy cessation [Unknown]
